FAERS Safety Report 8347893-3 (Version None)
Quarter: 2012Q1

REPORT INFORMATION
  Report Type: 
  Country: None (occurrence: None)
  Receive Date: 20120315
  Receipt Date: 20110127
  Transmission Date: 20120608
  Serious: No
  Sender: FDA-Public Use
  Company Number: PHHY2011US07860

PATIENT

DRUGS (1)
  1. GILENYA [Suspect]
     Dates: start: 20110103

REACTIONS (1)
  - BLISTER [None]
